FAERS Safety Report 10734237 (Version 1)
Quarter: 2015Q1

REPORT INFORMATION
  Report Type: Spontaneous
  Country: US (occurrence: US)
  Receive Date: 20150123
  Receipt Date: 20150123
  Transmission Date: 20150721
  Serious: Yes (Death, Other)
  Sender: FDA-Public Use
  Company Number: US-ABBVIE-15P-163-1334966-00

PATIENT
  Sex: Male

DRUGS (1)
  1. ANDROGEL [Suspect]
     Active Substance: TESTOSTERONE
     Indication: BLOOD TESTOSTERONE DECREASED
     Dosage: FREQUENCY UNKNOWN
     Route: 061

REACTIONS (5)
  - Emotional distress [Unknown]
  - Economic problem [Unknown]
  - Acute myocardial infarction [Fatal]
  - Pain [Unknown]
  - Injury [Unknown]

NARRATIVE: CASE EVENT DATE: 20120118
